FAERS Safety Report 20357525 (Version 1)
Quarter: 2022Q1

REPORT INFORMATION
  Report Type: Spontaneous
  Country: US (occurrence: US)
  Receive Date: 20220120
  Receipt Date: 20220120
  Transmission Date: 20220423
  Serious: Yes (Death, Hospitalization, Other)
  Sender: FDA-Public Use
  Company Number: US-GLAXOSMITHKLINE-US2017GSK184728

PATIENT
  Age: 64 Year
  Sex: Male

DRUGS (3)
  1. IBUPROFEN [Suspect]
     Active Substance: IBUPROFEN
     Indication: Product used for unknown indication
     Dosage: UNK
     Route: 048
  2. DROPERIDOL\FENTANYL [Suspect]
     Active Substance: DROPERIDOL\FENTANYL
     Indication: Product used for unknown indication
     Dosage: UNK
     Route: 048
  3. DROPERIDOL\FENTANYL [Suspect]
     Active Substance: DROPERIDOL\FENTANYL
     Dosage: UNK
     Route: 061

REACTIONS (1)
  - Completed suicide [Fatal]

NARRATIVE: CASE EVENT DATE: 20160101
